FAERS Safety Report 24308595 (Version 1)
Quarter: 2024Q3

REPORT INFORMATION
  Report Type: Spontaneous
  Country: JP (occurrence: JP)
  Receive Date: 20240911
  Receipt Date: 20240911
  Transmission Date: 20241016
  Serious: Yes (Life-Threatening, Hospitalization, Other)
  Sender: PFIZER
  Company Number: JP-PFIZER INC-PV202400118313

PATIENT
  Age: 69 Year
  Sex: Female

DRUGS (3)
  1. BEVACIZUMAB [Suspect]
     Active Substance: BEVACIZUMAB
     Indication: Rectal cancer metastatic
     Dosage: UNK, CYCLIC
  2. TIPIRACIL HYDROCHLORIDE\TRIFLURIDINE [Suspect]
     Active Substance: TIPIRACIL HYDROCHLORIDE\TRIFLURIDINE
     Indication: Rectal cancer metastatic
     Dosage: UNK, CYCLIC
  3. PANITUMUMAB [Suspect]
     Active Substance: PANITUMUMAB
     Indication: Rectal cancer metastatic
     Dosage: UNK, CYCLIC

REACTIONS (1)
  - Subdural abscess [Recovering/Resolving]
